FAERS Safety Report 9800682 (Version 1)
Quarter: 2014Q1

REPORT INFORMATION
  Report Type: Spontaneous
  Country: SI (occurrence: SI)
  Receive Date: 20140107
  Receipt Date: 20140107
  Transmission Date: 20141002
  Serious: Yes (Hospitalization)
  Sender: FDA-Public Use
  Company Number: SI-ROCHE-1328523

PATIENT
  Age: 66 Year
  Sex: Female
  Weight: 72 kg

DRUGS (9)
  1. MABTHERA [Suspect]
     Indication: RHEUMATOID ARTHRITIS
     Route: 042
     Dates: start: 20040820, end: 20121115
  2. MABTHERA [Suspect]
     Route: 042
  3. FOLACIN [Concomitant]
     Route: 065
  4. ROCALTROL [Concomitant]
     Route: 065
  5. CALCIUM CARBONATE [Concomitant]
     Route: 065
  6. ASPIRIN PROTECT [Concomitant]
     Route: 065
  7. BONVIVA [Concomitant]
     Route: 065
  8. TARKA [Concomitant]
     Route: 065
  9. MAREVAN [Concomitant]
     Route: 065

REACTIONS (1)
  - Interstitial lung disease [Recovered/Resolved]
